FAERS Safety Report 22923134 (Version 2)
Quarter: 2023Q4

REPORT INFORMATION
  Report Type: Spontaneous
  Country: FR (occurrence: None)
  Receive Date: 20230908
  Receipt Date: 20231003
  Transmission Date: 20240110
  Serious: Yes (Death, Hospitalization, Other)
  Sender: FDA-Public Use
  Company Number: 2023A202566

PATIENT
  Age: 27457 Day
  Sex: Female
  Weight: 67 kg

DRUGS (6)
  1. LYNPARZA [Suspect]
     Active Substance: OLAPARIB
     Indication: Breast cancer metastatic
     Dosage: 600.0MG UNKNOWN
     Route: 048
     Dates: start: 20230310, end: 20230606
  2. LYNPARZA [Suspect]
     Active Substance: OLAPARIB
     Indication: Breast cancer metastatic
     Dosage: GENERIC250.0MG UNKNOWN
     Route: 048
     Dates: start: 20230407, end: 20230622
  3. SYMBICORT [Concomitant]
     Active Substance: BUDESONIDE\FORMOTEROL FUMARATE DIHYDRATE
     Indication: Asthma
     Dosage: 1 INHALATION MORNING AND EVENING
  4. ALBUTEROL [Concomitant]
     Active Substance: ALBUTEROL
     Indication: Asthma
     Dosage: 100?G IF NEEDED
  5. CRESTOR [Concomitant]
     Active Substance: ROSUVASTATIN CALCIUM
     Indication: Hypolipidaemia
     Dosage: 5MG 1 TABLET
  6. PRITUR [Concomitant]
     Indication: Hypertension
     Dosage: 40MG 1 TABLET

REACTIONS (7)
  - Renal failure [Fatal]
  - B-cell unclassifiable lymphoma high grade [Fatal]
  - Myelodysplastic syndrome [Unknown]
  - Vertigo [Unknown]
  - Metastases to bone [Unknown]
  - Metastases to lymph nodes [Unknown]
  - Renal mass [Unknown]

NARRATIVE: CASE EVENT DATE: 20230818
